FAERS Safety Report 8247654-X (Version None)
Quarter: 2012Q1

REPORT INFORMATION
  Report Type: 
  Country: None (occurrence: None)
  Receive Date: 20120330
  Receipt Date: 20120322
  Transmission Date: 20120608
  Serious: Yes (Other)
  Sender: FDA-Public Use
  Company Number: US-ELI_LILLY_AND_COMPANY-US201203007850

PATIENT
  Sex: Female

DRUGS (1)
  1. FORTEO [Suspect]
     Indication: OSTEOPOROSIS
     Dosage: UNK, UNKNOWN
     Dates: start: 20070501, end: 20080501

REACTIONS (5)
  - LIVER INJURY [None]
  - CEREBROVASCULAR ACCIDENT [None]
  - SURGERY [None]
  - ABDOMINAL OPERATION [None]
  - CHEMOTHERAPY [None]
